FAERS Safety Report 5315964-1 (Version None)
Quarter: 2007Q2

REPORT INFORMATION
  Report Type: 
  Country: None (occurrence: None)
  Receive Date: 20070503
  Receipt Date: 20070420
  Transmission Date: 20071010
  Serious: Yes (Life-Threatening)
  Sender: FDA-Public Use
  Company Number: JP-ROCHE-481985

PATIENT
  Age: 20 Year
  Sex: Male

DRUGS (2)
  1. TAMIFLU [Suspect]
     Route: 048
     Dates: start: 20070204, end: 20070204
  2. MEPTIN [Concomitant]
     Dosage: TRADE NAME REPORTED AS MEPTIN AIR. FORM: INHALANT.
     Route: 055

REACTIONS (2)
  - ABNORMAL BEHAVIOUR [None]
  - HYPERVENTILATION [None]
